FAERS Safety Report 14094361 (Version 1)
Quarter: 2017Q4

REPORT INFORMATION
  Report Type: Spontaneous
  Country: US (occurrence: US)
  Receive Date: 20171016
  Receipt Date: 20171016
  Transmission Date: 20180321
  Serious: No
  Sender: FDA-Public Use
  Company Number: US-AMGEN-USASP2017034119

PATIENT
  Age: 69 Year
  Sex: Female

DRUGS (6)
  1. VASELINE PURE [Concomitant]
     Active Substance: PETROLATUM
  2. DOXEPIN [Concomitant]
     Active Substance: DOXEPIN
  3. PREDNISONE. [Concomitant]
     Active Substance: PREDNISONE
     Dosage: 60 MG, UNK
  4. PREDNISONE. [Concomitant]
     Active Substance: PREDNISONE
     Dosage: 10 MG, UNK
  5. MYCOPHENOLATE [Concomitant]
     Active Substance: MYCOPHENOLIC ACID
     Indication: RHEUMATIC DISORDER
  6. PROLIA [Suspect]
     Active Substance: DENOSUMAB
     Indication: PRODUCT USED FOR UNKNOWN INDICATION
     Dosage: UNK
     Route: 065
     Dates: start: 201605

REACTIONS (9)
  - Paronychia [Recovering/Resolving]
  - Papule [Recovering/Resolving]
  - Rash [Not Recovered/Not Resolved]
  - Urticaria [Unknown]
  - Pain [Unknown]
  - Skin erosion [Recovering/Resolving]
  - Seborrhoeic keratosis [Unknown]
  - Macule [Recovering/Resolving]
  - Pruritus [Unknown]

NARRATIVE: CASE EVENT DATE: 201606
